FAERS Safety Report 6384848-2 (Version None)
Quarter: 2009Q4

REPORT INFORMATION
  Report Type: 
  Country: None (occurrence: None)
  Receive Date: 20091002
  Receipt Date: 20090924
  Transmission Date: 20100525
  Serious: Yes (Other)
  Sender: FDA-Public Use
  Company Number: DE-BIOGENIDEC-2009BI029281

PATIENT
  Age: 24 Year
  Sex: Male
  Weight: 85 kg

DRUGS (2)
  1. TYSABRI [Suspect]
     Indication: RELAPSING-REMITTING MULTIPLE SCLEROSIS
     Route: 042
     Dates: start: 20080915
  2. TYSABRI [Suspect]
     Route: 042
     Dates: start: 20080915

REACTIONS (3)
  - HEMIPARESIS [None]
  - JC VIRUS INFECTION [None]
  - VISUAL IMPAIRMENT [None]
